FAERS Safety Report 18063171 (Version 1)
Quarter: 2020Q3

REPORT INFORMATION
  Report Type: Spontaneous
  Country: US (occurrence: US)
  Receive Date: 20200724
  Receipt Date: 20200724
  Transmission Date: 20201103
  Serious: No
  Sender: FDA-Public Use
  Company Number: US-TEVA-2020-US-1806250

PATIENT
  Sex: Female

DRUGS (1)
  1. COPAXONE [Suspect]
     Active Substance: GLATIRAMER ACETATE
     Dosage: AUTOINJECTOR
     Route: 065

REACTIONS (3)
  - Drug ineffective [Unknown]
  - Device use issue [Unknown]
  - Syringe issue [Unknown]
